FAERS Safety Report 12326327 (Version 1)
Quarter: 2016Q2

REPORT INFORMATION
  Report Type: Spontaneous
  Country: US (occurrence: None)
  Receive Date: 20160502
  Receipt Date: 20160502
  Transmission Date: 20160815
  Serious: Yes (Disabling)
  Sender: FDA-Public Use
  Company Number: None

PATIENT
  Age: 63 Year
  Sex: Female
  Weight: 45.36 kg

DRUGS (1)
  1. ALENDRONATE [Suspect]
     Active Substance: ALENDRONATE SODIUM
     Indication: OSTEOPOROSIS
     Route: 048
     Dates: start: 20160322, end: 20160322

REACTIONS (5)
  - Toothache [None]
  - Blood blister [None]
  - Pain [None]
  - Bone pain [None]
  - Loose tooth [None]

NARRATIVE: CASE EVENT DATE: 20160323
